FAERS Safety Report 10310812 (Version 1)
Quarter: 2014Q3

REPORT INFORMATION
  Report Type: Spontaneous
  Country: US (occurrence: None)
  Receive Date: 20140716
  Receipt Date: 20140716
  Transmission Date: 20150326
  Serious: No
  Sender: FDA-Public Use
  Company Number: None

PATIENT
  Age: 70 Year
  Sex: Male

DRUGS (1)
  1. TESTOPEL [Suspect]
     Active Substance: TESTOSTERONE
     Indication: TESTICULAR FAILURE
     Dosage: 12 PELLETS EVERY 3 MONTH
     Route: 058
     Dates: start: 20131218

REACTIONS (3)
  - Impaired healing [None]
  - Skin disorder [None]
  - Infection [None]

NARRATIVE: CASE EVENT DATE: 201404
